FAERS Safety Report 14661526 (Version 1)
Quarter: 2018Q1

REPORT INFORMATION
  Report Type: Report from Study
  Country: US (occurrence: US)
  Receive Date: 20180320
  Receipt Date: 20180320
  Transmission Date: 20180509
  Serious: Yes (Hospitalization)
  Sender: FDA-Public Use
  Company Number: US-ACTELION-A-NJ2017-150066

PATIENT
  Age: 1 Year
  Sex: Male

DRUGS (14)
  1. TRACLEER [Suspect]
     Active Substance: BOSENTAN
     Indication: PULMONARY ARTERIAL HYPERTENSION
     Dosage: 1.6 ML, BID
     Route: 049
     Dates: start: 20161102
  2. TRACLEER [Suspect]
     Active Substance: BOSENTAN
     Dosage: 62.5 MG, BID
     Route: 048
  3. PULMICORT TURBUHALER [Concomitant]
     Active Substance: BUDESONIDE
  4. ROCALTROL [Concomitant]
     Active Substance: CALCITRIOL
     Dosage: 0.2 MG, TID
  5. REVATIO [Concomitant]
     Active Substance: SILDENAFIL CITRATE
     Dosage: UNK, TID
  6. CALCIUM CARBONATE. [Concomitant]
     Active Substance: CALCIUM CARBONATE
     Dosage: 150 MG, QID
  7. MIRALAX [Concomitant]
     Active Substance: POLYETHYLENE GLYCOL 3350
  8. TRACLEER [Suspect]
     Active Substance: BOSENTAN
     Dosage: 5 MG, BID
     Route: 050
  9. TYLENOL [Concomitant]
     Active Substance: ACETAMINOPHEN
  10. DIURIL [Concomitant]
     Active Substance: CHLOROTHIAZIDE
     Dosage: 75 MG, BID
  11. NYSTATIN. [Concomitant]
     Active Substance: NYSTATIN
  12. ERYTHROMYCIN. [Concomitant]
     Active Substance: ERYTHROMYCIN
     Dosage: 16 MG, QID
  13. FER IN SOL [Concomitant]
  14. PREVACID [Concomitant]
     Active Substance: LANSOPRAZOLE
     Dosage: 5.5 MG, BID

REACTIONS (2)
  - Head circumference abnormal [Recovered/Resolved]
  - Gastrostomy tube site complication [Recovered/Resolved]

NARRATIVE: CASE EVENT DATE: 20170130
